FAERS Safety Report 25090048 (Version 1)
Quarter: 2025Q1

REPORT INFORMATION
  Report Type: Spontaneous
  Country: CA (occurrence: CA)
  Receive Date: 20250318
  Receipt Date: 20250318
  Transmission Date: 20250409
  Serious: Yes (Hospitalization)
  Sender: HLS THERAPEUTICS
  Company Number: CA-HLS-202500686

PATIENT
  Age: 38 Year
  Sex: Male
  Weight: 107 kg

DRUGS (2)
  1. CLOZARIL [Suspect]
     Active Substance: CLOZAPINE
     Indication: Schizophrenia
     Route: 048
  2. LEVOMILNACIPRAN [Concomitant]
     Active Substance: LEVOMILNACIPRAN
     Indication: Product used for unknown indication
     Route: 065

REACTIONS (4)
  - Abdominal pain [Recovering/Resolving]
  - Faecaloma [Recovering/Resolving]
  - Haematemesis [Recovering/Resolving]
  - Intestinal obstruction [Recovering/Resolving]
